FAERS Safety Report 21323501 (Version 1)
Quarter: 2022Q3

REPORT INFORMATION
  Report Type: Report from Study
  Country: BE (occurrence: BE)
  Receive Date: 20220912
  Receipt Date: 20220912
  Transmission Date: 20221027
  Serious: Yes (Hospitalization)
  Sender: FDA-Public Use
  Company Number: BE-ABBVIE-22K-013-4534091-00

PATIENT
  Sex: Female

DRUGS (5)
  1. CARBIDOPA\LEVODOPA [Suspect]
     Active Substance: CARBIDOPA\LEVODOPA
     Indication: Parkinson^s disease
     Dosage: MD 9.0 ML; CD 4.0 ML/HR DURING 16 HOURS; ED 2.0 ML
     Route: 050
     Dates: start: 20210830, end: 20210901
  2. CARBIDOPA\LEVODOPA [Suspect]
     Active Substance: CARBIDOPA\LEVODOPA
     Dosage: MD 9.0 ML; CD 3.3 ML/HR DURING 16 HOURS; ED 2.0 ML
     Route: 050
     Dates: start: 20210901, end: 20211014
  3. CARBIDOPA\LEVODOPA [Suspect]
     Active Substance: CARBIDOPA\LEVODOPA
     Dosage: MD 9.0 ML; CD 3.5 ML/HR DURING 16 HOURS; ED 2.0 ML
     Route: 050
     Dates: start: 20211014, end: 20211221
  4. CARBIDOPA\LEVODOPA [Suspect]
     Active Substance: CARBIDOPA\LEVODOPA
     Dosage: MD 9.5 ML; CD 3.5 ML/HR DURING 16 HOURS; ED 2.0 ML
     Route: 050
     Dates: start: 20211221, end: 20220225
  5. CARBIDOPA\LEVODOPA [Suspect]
     Active Substance: CARBIDOPA\LEVODOPA
     Dosage: MD 9.5 ML; CD 3.5 ML/HR DURING 16 HOURS; ED 2.5 ML
     Route: 050
     Dates: start: 20220225

REACTIONS (2)
  - Upper limb fracture [Unknown]
  - Fall [Unknown]
